FAERS Safety Report 11864108 (Version 2)
Quarter: 2016Q3

REPORT INFORMATION
  Report Type: Spontaneous
  Country: GB (occurrence: GB)
  Receive Date: 20151223
  Receipt Date: 20160705
  Transmission Date: 20161109
  Serious: Yes (Hospitalization, Other)
  Sender: FDA-Public Use
  Company Number: GB-TEVA-620473ISR

PATIENT
  Age: 57 Year
  Sex: Female

DRUGS (1)
  1. CITALOPRAM [Suspect]
     Active Substance: CITALOPRAM HYDROBROMIDE
     Indication: ANTIDEPRESSANT THERAPY
     Dosage: 20MG
     Route: 065

REACTIONS (9)
  - Female sexual arousal disorder [Recovered/Resolved]
  - Depressive symptom [Recovered/Resolved]
  - Anxiety [Unknown]
  - Depressed mood [Unknown]
  - Atrophic vulvovaginitis [Unknown]
  - Streptococcal infection [Unknown]
  - Emotional distress [Unknown]
  - Genital disorder female [Recovered/Resolved]
  - Suicidal ideation [Unknown]
